FAERS Safety Report 17495370 (Version 1)
Quarter: 2020Q1

REPORT INFORMATION
  Report Type: Spontaneous
  Country: US (occurrence: US)
  Receive Date: 20200221
  Receipt Date: 20200221
  Transmission Date: 20200409
  Serious: No
  Sender: FDA-Public Use
  Company Number: None

PATIENT
  Age: 73 Year
  Sex: Male
  Weight: 37.65 kg

DRUGS (1)
  1. ABIRATERONE (ABIRATERONE ACETATE 250M,G TAB) [Suspect]
     Active Substance: ABIRATERONE ACETATE
     Route: 048
     Dates: start: 20191003, end: 20191202

REACTIONS (2)
  - Hepatotoxicity [None]
  - Hepatic enzyme increased [None]

NARRATIVE: CASE EVENT DATE: 20191202
